FAERS Safety Report 16705735 (Version 1)
Quarter: 2019Q3

REPORT INFORMATION
  Report Type: Spontaneous
  Country: CN (occurrence: CN)
  Receive Date: 20190815
  Receipt Date: 20190815
  Transmission Date: 20191004
  Serious: Yes (Hospitalization)
  Sender: FDA-Public Use
  Company Number: CN-BAYER-2019-150833

PATIENT
  Age: 86 Year
  Sex: Female
  Weight: 60 kg

DRUGS (2)
  1. AVELOX [Suspect]
     Active Substance: MOXIFLOXACIN HYDROCHLORIDE
     Indication: BRONCHIECTASIS
     Dosage: 0.4 G, QD
     Route: 041
     Dates: start: 20190805, end: 20190808
  2. AVELOX [Suspect]
     Active Substance: MOXIFLOXACIN HYDROCHLORIDE
     Indication: BRONCHITIS

REACTIONS (11)
  - Breath sounds abnormal [Recovering/Resolving]
  - Vomiting [Recovering/Resolving]
  - Unresponsive to stimuli [Recovering/Resolving]
  - Blood pressure systolic increased [Recovering/Resolving]
  - Nausea [Recovering/Resolving]
  - Convulsions local [Recovered/Resolved]
  - Altered state of consciousness [Recovering/Resolving]
  - Gaze palsy [Recovering/Resolving]
  - Rales [Recovering/Resolving]
  - Convulsions local [Recovered/Resolved]
  - Urinary incontinence [Recovering/Resolving]

NARRATIVE: CASE EVENT DATE: 20190807
